FAERS Safety Report 6393939-1 (Version None)
Quarter: 2009Q4

REPORT INFORMATION
  Report Type: 
  Country: None (occurrence: None)
  Receive Date: 20091008
  Receipt Date: 20090925
  Transmission Date: 20100525
  Serious: Yes (Death, Hospitalization)
  Sender: FDA-Public Use
  Company Number: FR-PFIZER INC-2009257296

PATIENT
  Age: 49 Year

DRUGS (7)
  1. SUNITINIB MALATE [Suspect]
     Indication: THYROID CANCER
     Dosage: 50 MG, 1X/DAY
     Dates: end: 20090818
  2. PROPOFAN [Concomitant]
     Indication: ANALGESIC THERAPY
     Dosage: 2 TABLETS, 2X/DAY
     Dates: start: 20060101
  3. LEVOTHYROXINE SODIUM [Concomitant]
     Indication: HYPOTHYROIDISM
     Dosage: 175 UNK, 1X/DAY
     Dates: start: 20040101
  4. SOLUPRED [Concomitant]
     Indication: HYPOTHYROIDISM
     Dosage: 20 MG, 1X/DAY
     Dates: start: 20080101
  5. PARIET [Concomitant]
     Indication: PROPHYLAXIS AGAINST GASTROINTESTINAL ULCER
     Dosage: 20 UNK, 1X/DAY
     Dates: start: 20080101
  6. RIVOTRIL [Concomitant]
     Indication: NEUROPATHY PERIPHERAL
     Dosage: UNK
     Dates: start: 20090401
  7. LOW-MOLECULAR-WEIGHT HEPARIN [Concomitant]
     Indication: THROMBOSIS
     Dosage: UNK

REACTIONS (1)
  - MALIGNANT PLEURAL EFFUSION [None]
